FAERS Safety Report 14468643 (Version 1)
Quarter: 2018Q1

REPORT INFORMATION
  Report Type: Spontaneous
  Country: US (occurrence: US)
  Receive Date: 20180130
  Receipt Date: 20180130
  Transmission Date: 20180509
  Serious: Yes (Hospitalization)
  Sender: FDA-Public Use
  Company Number: None

PATIENT
  Age: 82 Year
  Sex: Female

DRUGS (8)
  1. BIOTIN [Concomitant]
     Active Substance: BIOTIN
  2. B-6 [Concomitant]
  3. COMPAZINE [Concomitant]
     Active Substance: PROCHLORPERAZINE MALEATE
  4. CALCIUM [Concomitant]
     Active Substance: CALCIUM
  5. ATIRVASTATIN [Concomitant]
  6. LONSURF [Suspect]
     Active Substance: TIPIRACIL HYDROCHLORIDE\TRIFLURIDINE
     Indication: COLON CANCER
     Dosage: BID O DAY 1-5 + 8-12
     Route: 048
     Dates: start: 20170730, end: 201801
  7. DYAZIDE [Concomitant]
     Active Substance: HYDROCHLOROTHIAZIDE\TRIAMTERENE
  8. CALCIUM CARB CHW [Concomitant]

REACTIONS (3)
  - Therapy cessation [None]
  - Therapy change [None]
  - Dehydration [None]
